FAERS Safety Report 25272999 (Version 2)
Quarter: 2025Q2

REPORT INFORMATION
  Report Type: Report from Study
  Country: ES (occurrence: ES)
  Receive Date: 20250506
  Receipt Date: 20250515
  Transmission Date: 20250716
  Serious: Yes (Hospitalization)
  Sender: ABBVIE
  Company Number: ES-ABBVIE-6266206

PATIENT
  Age: 76 Year
  Sex: Female
  Weight: 80 kg

DRUGS (2)
  1. CARBIDOPA\LEVODOPA [Suspect]
     Active Substance: CARBIDOPA\LEVODOPA
     Indication: Parkinson^s disease
     Route: 050
     Dates: start: 20171221
  2. CARBIDOPA\LEVODOPA [Suspect]
     Active Substance: CARBIDOPA\LEVODOPA

REACTIONS (8)
  - Urinary tract infection [Recovered/Resolved]
  - Hypothyroidism [Not Recovered/Not Resolved]
  - Gait inability [Recovering/Resolving]
  - Mobility decreased [Not Recovered/Not Resolved]
  - Fall [Recovering/Resolving]
  - Muscle atrophy [Recovering/Resolving]
  - Asthenia [Not Recovered/Not Resolved]
  - Bedridden [Recovering/Resolving]

NARRATIVE: CASE EVENT DATE: 20250401
